FAERS Safety Report 24726288 (Version 1)
Quarter: 2024Q4

REPORT INFORMATION
  Report Type: Spontaneous
  Country: BE (occurrence: BE)
  Receive Date: 20241212
  Receipt Date: 20241212
  Transmission Date: 20250115
  Serious: Yes (Other)
  Sender: BIOCODEX
  Company Number: BE-BIOCODEX2-2022000437

PATIENT
  Age: 26 Year
  Sex: Male

DRUGS (6)
  1. STIRIPENTOL [Suspect]
     Active Substance: STIRIPENTOL
     Indication: Epilepsy
     Dosage: 37 MG/KG/DAY
     Route: 065
  2. FENFLURAMINE [Concomitant]
     Active Substance: FENFLURAMINE
     Indication: Epilepsy
     Dosage: .25 MG/KG/DAY
     Route: 065
     Dates: start: 2014
  3. VALPROATE [Concomitant]
     Active Substance: VALPROIC ACID
     Indication: Epilepsy
     Route: 065
  4. TOPIRAMATE [Concomitant]
     Active Substance: TOPIRAMATE
     Indication: Epilepsy
     Route: 065
     Dates: end: 2015
  5. loflazepate [Concomitant]
     Indication: Epilepsy
     Route: 065
  6. BENZODIAZEPINE [Concomitant]
     Active Substance: BENZODIAZEPINE
     Indication: Epilepsy
     Route: 065

REACTIONS (5)
  - Seizure [Recovering/Resolving]
  - Decreased appetite [Recovering/Resolving]
  - Weight decreased [Unknown]
  - Drug ineffective [Unknown]
  - Product use in unapproved indication [Unknown]
